FAERS Safety Report 19158748 (Version 3)
Quarter: 2021Q2

REPORT INFORMATION
  Report Type: Report from Study
  Country: US (occurrence: US)
  Receive Date: 20210420
  Receipt Date: 20210526
  Transmission Date: 20210717
  Serious: No
  Sender: FDA-Public Use
  Company Number: US-KYOWAKIRIN-2021BKK005881

PATIENT

DRUGS (3)
  1. CRYSVITA [Suspect]
     Active Substance: BUROSUMAB-TWZA
     Dosage: 60 MG/ML, EVERY 28 DAYS
     Route: 058
     Dates: start: 201809, end: 20200601
  2. VITAMIN D [VITAMIN D NOS] [Concomitant]
     Active Substance: VITAMIN D NOS
     Indication: PRODUCT USED FOR UNKNOWN INDICATION
     Dosage: UNK
     Route: 065
  3. CRYSVITA [Suspect]
     Active Substance: BUROSUMAB-TWZA
     Indication: HEREDITARY HYPOPHOSPHATAEMIC RICKETS
     Dosage: 60 MG/ML, EVERY 28 DAYS/EVERY 4 WKS
     Route: 058
     Dates: start: 20210401

REACTIONS (6)
  - Injection site warmth [Recovered/Resolved]
  - Skin mass [Unknown]
  - Injection site pruritus [Recovered/Resolved]
  - Dermatitis [Unknown]
  - Injection site pain [Recovered/Resolved]
  - Erythema [Unknown]

NARRATIVE: CASE EVENT DATE: 202104
